FAERS Safety Report 24147844 (Version 1)
Quarter: 2024Q3

REPORT INFORMATION
  Report Type: Spontaneous
  Country: US (occurrence: None)
  Receive Date: 20240729
  Receipt Date: 20240729
  Transmission Date: 20241017
  Serious: Yes (Other)
  Sender: Public
  Company Number: None

PATIENT
  Sex: Female

DRUGS (11)
  1. BETASERON [Suspect]
     Active Substance: INTERFERON BETA-1B
     Indication: Multiple sclerosis
     Route: 058
     Dates: start: 20150702
  2. AMLODIPINE [Concomitant]
  3. AMPHET/DEXTR [Concomitant]
  4. BACLOFEN [Concomitant]
     Active Substance: BACLOFEN
  5. BETASERON [Concomitant]
     Active Substance: INTERFERON BETA-1B
  6. ESTRADIOL [Concomitant]
     Active Substance: ESTRADIOL
  7. FLUOXETINE [Concomitant]
     Active Substance: FLUOXETINE HYDROCHLORIDE
  8. FLUTICASONE [Concomitant]
     Active Substance: FLUTICASONE
  9. GABAPENTIN [Concomitant]
     Active Substance: GABAPENTIN
  10. ACETAMINOPHEN\HYDROCODONE [Concomitant]
     Active Substance: ACETAMINOPHEN\HYDROCODONE
  11. IRBESAR/HCTZ [Concomitant]

REACTIONS (6)
  - Depression [None]
  - Automatic bladder [None]
  - Gastrointestinal disorder [None]
  - Cognitive disorder [None]
  - Muscle spasms [None]
  - Abdominal operation [None]
